FAERS Safety Report 18684723 (Version 2)
Quarter: 2021Q1

REPORT INFORMATION
  Report Type: Spontaneous
  Country: US (occurrence: US)
  Receive Date: 20201230
  Receipt Date: 20210112
  Transmission Date: 20210419
  Serious: Yes (Other)
  Sender: FDA-Public Use
  Company Number: US-009507513-2012USA012486

PATIENT
  Sex: Male

DRUGS (5)
  1. JANUVIA [Suspect]
     Active Substance: SITAGLIPTIN PHOSPHATE
     Indication: DIABETES MELLITUS
     Dosage: 100 MILLIGRAM, QD
     Route: 048
     Dates: start: 2018, end: 202008
  2. LANTUS [Concomitant]
     Active Substance: INSULIN GLARGINE
  3. GLIPIZIDE. [Concomitant]
     Active Substance: GLIPIZIDE
  4. IRON (UNSPECIFIED) [Concomitant]
     Active Substance: IRON
  5. SIMETHICONE (DIMETHICONE) [Concomitant]
     Active Substance: DIMETHICONE

REACTIONS (6)
  - Gastric antral vascular ectasia [Not Recovered/Not Resolved]
  - Cardiac failure congestive [Recovering/Resolving]
  - Diverticulum [Not Recovered/Not Resolved]
  - Dyspnoea [Recovered/Resolved]
  - Arthralgia [Recovering/Resolving]
  - Fatigue [Recovered/Resolved]

NARRATIVE: CASE EVENT DATE: 2018
